FAERS Safety Report 20854721 (Version 3)
Quarter: 2023Q2

REPORT INFORMATION
  Report Type: Spontaneous
  Country: US (occurrence: US)
  Receive Date: 20220520
  Receipt Date: 20230602
  Transmission Date: 20230721
  Serious: No
  Sender: FDA-Public Use
  Company Number: US-BIOGEN-2022BI01124537

PATIENT
  Age: 59 Year
  Sex: Female

DRUGS (4)
  1. AVONEX [Suspect]
     Active Substance: INTERFERON BETA-1A
     Indication: Multiple sclerosis
     Route: 050
  2. AVONEX [Suspect]
     Active Substance: INTERFERON BETA-1A
  3. AVONEX [Suspect]
     Active Substance: INTERFERON BETA-1A
  4. AVONEX [Suspect]
     Active Substance: INTERFERON BETA-1A

REACTIONS (9)
  - Motor dysfunction [Unknown]
  - Memory impairment [Unknown]
  - Insomnia [Unknown]
  - Incontinence [Unknown]
  - Visual impairment [Unknown]
  - Vision blurred [Unknown]
  - Loss of bladder sensation [Unknown]
  - COVID-19 [Unknown]
  - Dry eye [Unknown]

NARRATIVE: CASE EVENT DATE: 20220901
